FAERS Safety Report 13565165 (Version 4)
Quarter: 2017Q3

REPORT INFORMATION
  Report Type: Spontaneous
  Country: FR (occurrence: FR)
  Receive Date: 20170519
  Receipt Date: 20170705
  Transmission Date: 20171127
  Serious: Yes (Hospitalization, Other)
  Sender: FDA-Public Use
  Company Number: FR-BRISTOL-MYERS SQUIBB COMPANY-BMS-2017-042058

PATIENT
  Age: 55 Year
  Sex: Male
  Weight: 89 kg

DRUGS (2)
  1. IPILIMUMAB [Suspect]
     Active Substance: IPILIMUMAB
     Indication: MALIGNANT MELANOMA
     Dosage: 3 MG/KG, Q3WK
     Route: 042
     Dates: start: 20170327, end: 20170418
  2. NIVOLUMAB [Suspect]
     Active Substance: NIVOLUMAB
     Indication: MALIGNANT MELANOMA
     Dosage: 1 MG/KG, UNK
     Route: 042
     Dates: start: 20170327, end: 20170418

REACTIONS (25)
  - Myalgia [Unknown]
  - Chest discomfort [Unknown]
  - Dry mouth [Unknown]
  - Rash papular [Unknown]
  - Cell death [Unknown]
  - Vision blurred [Unknown]
  - Pain [Unknown]
  - Pulpitis dental [Recovering/Resolving]
  - Muscle enzyme increased [Unknown]
  - Dry eye [Unknown]
  - Diarrhoea [Recovering/Resolving]
  - Blood lactate dehydrogenase increased [Unknown]
  - Hyperthyroidism [Unknown]
  - Weight decreased [Unknown]
  - Hyperhidrosis [Unknown]
  - Inflammation [Unknown]
  - Insomnia [Unknown]
  - Decreased appetite [Unknown]
  - Chills [Recovered/Resolved]
  - Cough [Unknown]
  - Headache [Unknown]
  - Liver disorder [Recovering/Resolving]
  - Pyrexia [Recovered/Resolved]
  - Fatigue [Unknown]
  - Ear pain [Unknown]

NARRATIVE: CASE EVENT DATE: 20170418
